FAERS Safety Report 4801786-4 (Version None)
Quarter: 2005Q4

REPORT INFORMATION
  Report Type: 
  Country: None (occurrence: None)
  Receive Date: 20051018
  Receipt Date: 20051011
  Transmission Date: 20060501
  Serious: Yes (Hospitalization)
  Sender: FDA-Public Use
  Company Number: US-JNJFOC-20051002699

PATIENT
  Sex: Male
  Weight: 145.15 kg

DRUGS (2)
  1. FENTANYL [Suspect]
     Route: 062
     Dates: start: 20050501
  2. FENTANYL [Suspect]
     Route: 062
     Dates: start: 20050501

REACTIONS (2)
  - DEHYDRATION [None]
  - DIARRHOEA [None]
